FAERS Safety Report 8894932 (Version 1)
Quarter: 2012Q4

REPORT INFORMATION
  Report Type: 
  Country: US (occurrence: US)
  Receive Date: 20121107
  Receipt Date: 20121107
  Transmission Date: 20130627
  Serious: No
  Sender: FDA-Public Use
  Company Number: US-AMGEN-USASP2011049730

PATIENT
  Age: 68 Year
  Sex: Female

DRUGS (18)
  1. ENBREL [Suspect]
     Indication: PRODUCT USED FOR UNKNOWN INDICATION
     Dosage: 50 mg, qwk
  2. CALCIUM [Concomitant]
     Dosage: UNK
  3. METHOTREXATE [Concomitant]
     Dosage: 2.5 mg, UNK
  4. DIOVAN [Concomitant]
  5. LEXAPRO [Concomitant]
     Dosage: 10 mg, UNK
  6. LYRICA [Concomitant]
     Dosage: 25 mg, UNK
  7. VITAMIN D /00107901/ [Concomitant]
     Dosage: UNK
  8. OCUVITE                            /01053801/ [Concomitant]
  9. LUMIGAN [Concomitant]
     Dosage: UNK
  10. AZOPT [Concomitant]
  11. RESTASIS [Concomitant]
     Dosage: UNK
  12. FORTEO [Concomitant]
  13. PEPCID                             /00706001/ [Concomitant]
     Dosage: 20 mg, UNK
  14. FISH OIL [Concomitant]
     Dosage: UNK
  15. AMOXICILLIN [Concomitant]
     Dosage: UNK
  16. LEVOFLOXACIN [Concomitant]
     Dosage: 500 mg, UNK
  17. PREVACID [Concomitant]
     Dosage: 15 mg, UNK
  18. CODEINE [Concomitant]
     Dosage: UNK

REACTIONS (3)
  - Lung infection [Unknown]
  - Pain [Unknown]
  - Sinusitis [Unknown]
